FAERS Safety Report 11205611 (Version 2)
Quarter: 2015Q4

REPORT INFORMATION
  Report Type: Spontaneous
  Country: US (occurrence: US)
  Receive Date: 20150622
  Receipt Date: 20151110
  Transmission Date: 20160304
  Serious: Yes (Other)
  Sender: FDA-Public Use
  Company Number: US-PFIZER INC-2015206259

PATIENT
  Age: 52 Year
  Sex: Male

DRUGS (12)
  1. DEPO-TESTOSTERONE [Suspect]
     Active Substance: TESTOSTERONE CYPIONATE
     Indication: PAIN IN EXTREMITY
  2. DEPO-TESTOSTERONE [Suspect]
     Active Substance: TESTOSTERONE CYPIONATE
     Indication: WEIGHT INCREASED
  3. ANDROGEL [Suspect]
     Active Substance: TESTOSTERONE
     Indication: HORMONE REPLACEMENT THERAPY
     Dosage: UNK, OVER USED
     Dates: start: 19950905, end: 2000
  4. ANDROGEL [Suspect]
     Active Substance: TESTOSTERONE
     Indication: PAIN IN EXTREMITY
  5. TESTODERM [Suspect]
     Active Substance: TESTOSTERONE
     Indication: HORMONE REPLACEMENT THERAPY
     Dosage: UNK, OVER USED
  6. TESTODERM [Suspect]
     Active Substance: TESTOSTERONE
     Indication: PAIN IN EXTREMITY
  7. DEPO-TESTOSTERONE [Suspect]
     Active Substance: TESTOSTERONE CYPIONATE
     Indication: HORMONE REPLACEMENT THERAPY
     Dosage: UNK
     Dates: start: 19950905, end: 2000
  8. ANDRODERM [Suspect]
     Active Substance: TESTOSTERONE
     Indication: HORMONE REPLACEMENT THERAPY
     Dosage: UNK
     Dates: start: 19950905, end: 2000
  9. TESTODERM [Suspect]
     Active Substance: TESTOSTERONE
     Indication: WEIGHT INCREASED
  10. ANDROGEL [Suspect]
     Active Substance: TESTOSTERONE
     Indication: WEIGHT INCREASED
  11. ANDRODERM [Suspect]
     Active Substance: TESTOSTERONE
     Indication: WEIGHT INCREASED
  12. ANDRODERM [Suspect]
     Active Substance: TESTOSTERONE
     Indication: PAIN IN EXTREMITY

REACTIONS (5)
  - Tooth disorder [Unknown]
  - Incorrect drug administration duration [None]
  - Arthritis [Unknown]
  - Arrhythmia [Unknown]
  - Thrombosis [Not Recovered/Not Resolved]
